FAERS Safety Report 12496031 (Version 1)
Quarter: 2016Q2

REPORT INFORMATION
  Report Type: Spontaneous
  Country: US (occurrence: US)
  Receive Date: 20160624
  Receipt Date: 20160624
  Transmission Date: 20160815
  Serious: No
  Sender: FDA-Public Use
  Company Number: US-BAUSCH-BL-2016-009386

PATIENT
  Age: 34 Year
  Sex: Female

DRUGS (2)
  1. LUZU [Suspect]
     Active Substance: LULICONAZOLE
     Indication: ONYCHOMYCOSIS
     Route: 065
     Dates: end: 20160419
  2. JUBLIA [Suspect]
     Active Substance: EFINACONAZOLE
     Indication: ONYCHOMYCOSIS
     Route: 065
     Dates: start: 201602, end: 20160419

REACTIONS (2)
  - Blister [Unknown]
  - Erythema [Unknown]

NARRATIVE: CASE EVENT DATE: 201604
